FAERS Safety Report 13115860 (Version 2)
Quarter: 2017Q1

REPORT INFORMATION
  Report Type: Spontaneous
  Country: AU (occurrence: AU)
  Receive Date: 20170115
  Receipt Date: 20170125
  Transmission Date: 20170428
  Serious: Yes (Other)
  Sender: FDA-Public Use
  Company Number: AU-ASTRAZENECA-2017SE01246

PATIENT
  Age: 24735 Day
  Sex: Female
  Weight: 109 kg

DRUGS (8)
  1. GLICLAZIDE [Concomitant]
     Active Substance: GLICLAZIDE
     Indication: DIABETES MELLITUS
     Route: 048
  2. FRUSEMIDE [Concomitant]
     Active Substance: FUROSEMIDE
  3. BYETTA [Suspect]
     Active Substance: EXENATIDE
     Route: 065
     Dates: start: 20160926
  4. COVERSYL [Concomitant]
     Active Substance: PERINDOPRIL
     Indication: HYPERTENSION
     Dosage: 5/1.25 MG
     Route: 048
  5. LANTUS [Concomitant]
     Active Substance: INSULIN GLARGINE
     Dates: start: 2014
  6. EZETIMIBE/ATORVASTATIN [Concomitant]
     Indication: BLOOD CHOLESTEROL ABNORMAL
     Dosage: 10.0MG UNKNOWN
     Route: 048
  7. BYETTA [Suspect]
     Active Substance: EXENATIDE
     Route: 065
     Dates: start: 201607
  8. METFORMIN [Concomitant]
     Active Substance: METFORMIN HYDROCHLORIDE
     Indication: DIABETES MELLITUS
     Route: 048

REACTIONS (2)
  - Rash [Unknown]
  - Pruritus [Recovered/Resolved]

NARRATIVE: CASE EVENT DATE: 20161017
